FAERS Safety Report 9498525 (Version 1)
Quarter: 2013Q3

REPORT INFORMATION
  Report Type: Report from Study
  Country: GB (occurrence: GB)
  Receive Date: 20130904
  Receipt Date: 20130904
  Transmission Date: 20140515
  Serious: Yes (Hospitalization)
  Sender: FDA-Public Use
  Company Number: GB-GLAXOSMITHKLINE-B0919169A

PATIENT
  Age: 61 Year
  Sex: Male

DRUGS (10)
  1. GSK1120212 [Suspect]
     Indication: MALIGNANT MELANOMA
     Dosage: 1.5MG PER DAY
     Route: 048
     Dates: start: 20130508, end: 20130817
  2. PACLITAXEL [Suspect]
     Indication: MALIGNANT MELANOMA
     Dosage: 180MG WEEKLY
     Dates: start: 20130508, end: 20130814
  3. PENICILLIN V [Concomitant]
     Indication: SPLENECTOMY
     Dosage: 500MG TWICE PER DAY
     Dates: start: 200602
  4. PARACETAMOL [Concomitant]
     Indication: PYREXIA
     Dosage: 1G AS REQUIRED
     Route: 048
     Dates: start: 20130706
  5. DOXYCYCLINE [Concomitant]
     Dosage: 100MG TWICE PER DAY
     Route: 048
     Dates: start: 2013
  6. PREDNISOLONE [Concomitant]
     Indication: INFLAMMATION
     Dosage: 5MG PER DAY
     Route: 048
  7. OMEPRAZOLE [Concomitant]
     Indication: GASTROOESOPHAGEAL REFLUX DISEASE
     Dosage: 40MG PER DAY
     Route: 048
     Dates: start: 20130711
  8. CHLORPHENAMINE MALEATE [Concomitant]
     Indication: RASH MACULO-PAPULAR
     Dosage: 10MG PER DAY
     Route: 048
     Dates: start: 20130522
  9. EUMOVATE CREAM [Concomitant]
     Indication: RASH MACULO-PAPULAR
     Route: 061
  10. CETRABEN [Concomitant]
     Indication: RASH MACULO-PAPULAR
     Route: 061
     Dates: start: 20130522

REACTIONS (3)
  - Diarrhoea [Not Recovered/Not Resolved]
  - Fatigue [Unknown]
  - Anaemia [Unknown]
